FAERS Safety Report 15751249 (Version 3)
Quarter: 2021Q4

REPORT INFORMATION
  Report Type: Spontaneous
  Country: US (occurrence: US)
  Receive Date: 20181221
  Receipt Date: 20211022
  Transmission Date: 20220303
  Serious: Yes (Disabling, Other)
  Sender: FDA-Public Use
  Company Number: US-TEVA-2018-US-988988

PATIENT
  Age: 53 Year
  Sex: Female
  Weight: 63.5 kg

DRUGS (18)
  1. DOCETAXEL [Suspect]
     Active Substance: DOCETAXEL
     Indication: Breast cancer female
     Dosage: DOSE: 136.6 MG (80 MG VIAL) IN NACL 0.9% 250 ML, 75 MG/M2 X 1.82 M2, EVERY 3 WEEKS
     Route: 042
     Dates: start: 20140729, end: 20141112
  2. DOCETAXEL [Suspect]
     Active Substance: DOCETAXEL
     Dosage: DOSE: 136.6 MG (20 MG VIAL) IN NACL 0.9% 250 ML, 75 MG/M2 X 1.82 M2, EVERY 3 WEEKS
     Route: 042
     Dates: start: 20140729, end: 20141112
  3. TAXOTERE [Suspect]
     Active Substance: DOCETAXEL
     Indication: Breast cancer female
     Dosage: DOSE: 136.6 MG IN NACL 0.9% 250 ML, 75 MG/M2 X 1.82 M2, EVERY 3 WEEKS
     Route: 042
     Dates: start: 20140729, end: 20141112
  4. DOCETAXEL [Suspect]
     Active Substance: DOCETAXEL
     Indication: Breast cancer female
     Dosage: DOSE: 136.6 MG IN NACL 0.9% 250 ML, 75 MG/M2 X 1.82 M2, EVERY 3 WEEKS
     Route: 042
     Dates: start: 20140729, end: 20141112
  5. DOCETAXEL [Suspect]
     Active Substance: DOCETAXEL
     Indication: Breast cancer female
     Dosage: DOSE: 136.6 MG IN NACL 0.9% 250 ML, 75 MG/M2 X 1.82 M2, EVERY 3 WEEKS
     Route: 042
     Dates: start: 20140729, end: 20141112
  6. HERCEPTIN [Suspect]
     Active Substance: TRASTUZUMAB
     Indication: Breast cancer female
     Dosage: DOSE: 565.4 MG IN NACL  0.9%, 250 ML INFUSION, 8 MG/KG X 70.8 KG, EVERY 3 WEEKS
     Route: 042
     Dates: start: 20140729, end: 20141112
  7. HERCEPTIN [Suspect]
     Active Substance: TRASTUZUMAB
     Dosage: DOSE: 426.8 MG IN NACL 0.9% 250 ML INFUSION. 6MG/KG X 71 KG
     Route: 042
     Dates: start: 20141231, end: 20141231
  8. PARAPLATIN [Suspect]
     Active Substance: CARBOPLATIN
     Indication: Breast cancer female
     Dosage: DOSE: 635 MG IN DEXTROSE 55 250 ML CHEMO INFUSION, EVERY 3 WEEKS
     Route: 042
     Dates: start: 20140729, end: 20141112
  9. KEFLEX [Concomitant]
     Active Substance: CEPHALEXIN
     Dosage: 1 CAPSULE EVERY 12 HOURS
     Route: 048
     Dates: start: 20140701, end: 20141003
  10. DECADRON [Concomitant]
     Active Substance: DEXAMETHASONE
     Indication: Breast cancer female
     Dosage: 2 TABLETS, ONCE IN DAY 2 AND 3 OF CHEMOTHERAPY CYCLE.
     Route: 065
     Dates: start: 20140716, end: 20141112
  11. DECADRON [Concomitant]
     Active Substance: DEXAMETHASONE
     Dosage: DOSE: 12 MG IN NACL 0.9%
     Route: 042
     Dates: start: 20140729, end: 20141112
  12. ROBAXIN [Concomitant]
     Active Substance: METHOCARBAMOL
     Dosage: 2250 MILLIGRAM DAILY;
     Route: 048
     Dates: end: 20141112
  13. ZOFRAN [Concomitant]
     Active Substance: ONDANSETRON HYDROCHLORIDE
     Indication: Nausea
     Dosage: EVERY 8 HOURS AS NEEDED
     Route: 048
     Dates: start: 20140718, end: 20140910
  14. ROXICODONE [Concomitant]
     Active Substance: OXYCODONE HYDROCHLORIDE
     Dosage: EVERY 6 HOURS AS NEEDED
     Route: 048
     Dates: start: 20140710, end: 20141204
  15. PERCOCET [Concomitant]
     Active Substance: ACETAMINOPHEN\OXYCODONE HYDROCHLORIDE
     Dosage: DOSE: 5-325 MG, EVERY 4 HOURS AS NEEDED
     Route: 048
     Dates: start: 20140625, end: 20141215
  16. COMPAZINE [Concomitant]
     Active Substance: PROCHLORPERAZINE MALEATE
     Indication: Nausea
     Dosage: EVERY 6 HOURS AS NEEDED
     Route: 048
     Dates: start: 20140716, end: 20141203
  17. HEPARIN [Concomitant]
     Active Substance: HEPARIN SODIUM
     Dosage: 100 UNITS/ML
     Route: 065
     Dates: start: 20140722, end: 20150217
  18. ROXICET [Concomitant]
     Active Substance: ACETAMINOPHEN\OXYCODONE HYDROCHLORIDE
     Dosage: DOSE: 5-325 MG, EVERY 4 HOURS AS NEEDED
     Route: 048
     Dates: start: 20140625, end: 20141215

REACTIONS (14)
  - Alopecia totalis [Recovered/Resolved]
  - Alopecia areata [Not Recovered/Not Resolved]
  - Madarosis [Not Recovered/Not Resolved]
  - Clostridium difficile infection [Unknown]
  - Hair texture abnormal [Not Recovered/Not Resolved]
  - Hair colour changes [Not Recovered/Not Resolved]
  - Anaemia [Unknown]
  - Chronic left ventricular failure [Not Recovered/Not Resolved]
  - Abdominal pain [Unknown]
  - Weight decreased [Unknown]
  - Echocardiogram abnormal [Unknown]
  - Catheter site erythema [Unknown]
  - Catheter site swelling [Unknown]
  - Chest pain [Unknown]

NARRATIVE: CASE EVENT DATE: 20140101
